FAERS Safety Report 8487699-8 (Version None)
Quarter: 2012Q3

REPORT INFORMATION
  Report Type: 
  Country: None (occurrence: None)
  Receive Date: 20120705
  Receipt Date: 20120626
  Transmission Date: 20120928
  Serious: Yes (Other)
  Sender: FDA-Public Use
  Company Number: US-JNJFOC-20120614736

PATIENT
  Sex: Male

DRUGS (4)
  1. INVEGA SUSTENNA [Suspect]
     Indication: SCHIZOPHRENIA
     Dosage: ON DAY 1
     Route: 030
     Dates: start: 20120201, end: 20120201
  2. GEODON [Concomitant]
     Indication: SCHIZOPHRENIA
     Route: 030
     Dates: start: 20120201, end: 20120201
  3. NAVANE [Concomitant]
     Route: 048
  4. INVEGA SUSTENNA [Suspect]
     Dosage: ON DAY 8
     Route: 030
     Dates: start: 20120201, end: 20120201

REACTIONS (4)
  - PANIC DISORDER [None]
  - DECREASED APPETITE [None]
  - SUICIDAL IDEATION [None]
  - ANXIETY [None]
